FAERS Safety Report 19899285 (Version 4)
Quarter: 2022Q1

REPORT INFORMATION
  Report Type: Report from Study
  Country: DE (occurrence: DE)
  Receive Date: 20210929
  Receipt Date: 20220202
  Transmission Date: 20220423
  Serious: Yes (Other)
  Sender: FDA-Public Use
  Company Number: NVSC2021DE219765

PATIENT
  Sex: Female
  Weight: 86 kg

DRUGS (3)
  1. MAYZENT [Suspect]
     Active Substance: SIPONIMOD
     Indication: Secondary progressive multiple sclerosis
     Dosage: 2 MG, QD
     Route: 048
     Dates: start: 20201009
  2. MAYZENT [Suspect]
     Active Substance: SIPONIMOD
     Dosage: 0 MG, QD
     Route: 048
     Dates: start: 20210419, end: 20210628
  3. MAYZENT [Suspect]
     Active Substance: SIPONIMOD
     Dosage: 2 MG, QD
     Route: 048
     Dates: start: 20210629

REACTIONS (5)
  - Thrombosis [Recovered/Resolved]
  - Oral herpes [Recovered/Resolved]
  - Foot fracture [Recovered/Resolved]
  - Osteoarthritis [Recovering/Resolving]
  - Peripheral swelling [Recovered/Resolved]

NARRATIVE: CASE EVENT DATE: 20201015
